FAERS Safety Report 23421717 (Version 1)
Quarter: 2024Q1

REPORT INFORMATION
  Report Type: Report from Study
  Country: JP (occurrence: JP)
  Receive Date: 20240119
  Receipt Date: 20240119
  Transmission Date: 20240410
  Serious: Yes (Other)
  Sender: FDA-Public Use
  Company Number: JP-DSJP-DSJ-2024-102061

PATIENT
  Age: 8 Decade
  Sex: Male

DRUGS (1)
  1. EDOXABAN [Suspect]
     Active Substance: EDOXABAN
     Indication: Product used for unknown indication
     Dosage: UNK
     Route: 048

REACTIONS (2)
  - Brain herniation [Unknown]
  - Cerebral haemorrhage [Unknown]
